FAERS Safety Report 7051253-5 (Version None)
Quarter: 2010Q4

REPORT INFORMATION
  Report Type: 
  Country: None (occurrence: None)
  Receive Date: 20101014
  Receipt Date: 20101003
  Transmission Date: 20110411
  Serious: Yes (Death)
  Sender: FDA-Public Use
  Company Number: 1000016643

PATIENT

DRUGS (1)
  1. TESSALON [Suspect]

REACTIONS (1)
  - ARRHYTHMIA [None]
